FAERS Safety Report 10844981 (Version 2)
Quarter: 2015Q2

REPORT INFORMATION
  Report Type: Spontaneous
  Country: US (occurrence: US)
  Receive Date: 20150220
  Receipt Date: 20150415
  Transmission Date: 20150821
  Serious: Yes (Death)
  Sender: FDA-Public Use
  Company Number: US-BIOGENIDEC-2015BI016146

PATIENT
  Sex: Female

DRUGS (5)
  1. TECFIDERA [Suspect]
     Active Substance: DIMETHYL FUMARATE
     Indication: MULTIPLE SCLEROSIS
     Route: 048
     Dates: start: 20130723, end: 20141230
  2. XANAX [Concomitant]
     Active Substance: ALPRAZOLAM
  3. CALCIUM [Concomitant]
     Active Substance: CALCIUM
  4. TRIAZOLAM. [Concomitant]
     Active Substance: TRIAZOLAM
  5. DIOVAN [Concomitant]
     Active Substance: VALSARTAN

REACTIONS (1)
  - Motor neurone disease [Fatal]

NARRATIVE: CASE EVENT DATE: 2014
